FAERS Safety Report 4846228-8 (Version None)
Quarter: 2005Q4

REPORT INFORMATION
  Report Type: 
  Country: None (occurrence: None)
  Receive Date: 20051130
  Receipt Date: 20051118
  Transmission Date: 20060501
  Serious: Yes (Disabling)
  Sender: FDA-Public Use
  Company Number: TPG2005A00470

PATIENT
  Age: 47 Year
  Sex: Male

DRUGS (6)
  1. ACTOS [Suspect]
     Indication: DIABETES MELLITUS
     Dosage: 30 MG (30 MG, 1 IN 1 D) PER ORAL
     Route: 048
     Dates: start: 20050704, end: 20050831
  2. ACTOS [Suspect]
     Indication: DIABETES MELLITUS
     Dosage: 30 MG (30 MG, 1 IN 1 D) PER ORAL
     Route: 048
     Dates: start: 20051001
  3. METFIN (METFORMIN) [Concomitant]
  4. NOVONORM (REPAGLINIDE) [Concomitant]
  5. LOGIMAX (MODILOC) [Concomitant]
  6. TELFAST (FEXOFENADINE HYDROCHLORIDE) [Concomitant]

REACTIONS (4)
  - OEDEMA PERIPHERAL [None]
  - SUPRAVENTRICULAR EXTRASYSTOLES [None]
  - SUPRAVENTRICULAR TACHYCARDIA [None]
  - WEIGHT INCREASED [None]
